FAERS Safety Report 18054250 (Version 1)
Quarter: 2020Q3

REPORT INFORMATION
  Report Type: Spontaneous
  Country: US (occurrence: US)
  Receive Date: 20200721
  Receipt Date: 20200721
  Transmission Date: 20201103
  Serious: No
  Sender: FDA-Public Use
  Company Number: None

PATIENT
  Age: 71 Year
  Sex: Male
  Weight: 90.9 kg

DRUGS (1)
  1. HYDROMORPHONE (HYDROMORPHONE 0.2MG/ML INJ, 30ML) [Suspect]
     Active Substance: HYDROMORPHONE
     Indication: PAIN
     Route: 042
     Dates: start: 20180501, end: 20180501

REACTIONS (2)
  - Hyperventilation [None]
  - Chest discomfort [None]

NARRATIVE: CASE EVENT DATE: 20180501
